FAERS Safety Report 16917571 (Version 3)
Quarter: 2020Q2

REPORT INFORMATION
  Report Type: Spontaneous
  Country: CA (occurrence: CA)
  Receive Date: 20191015
  Receipt Date: 20200512
  Transmission Date: 20200713
  Serious: Yes (Hospitalization)
  Sender: FDA-Public Use
  Company Number: CA-TEVA-2019-CA-1121223

PATIENT
  Age: 4 Year
  Sex: Female

DRUGS (6)
  1. MEROPENEM. [Concomitant]
     Active Substance: MEROPENEM
  2. VANCOMYCIN [Concomitant]
     Active Substance: VANCOMYCIN
  3. IFEX [Suspect]
     Active Substance: IFOSFAMIDE
     Indication: NEPHROBLASTOMA
     Route: 065
  4. ETOPOSIDE. [Suspect]
     Active Substance: ETOPOSIDE
     Indication: NEPHROBLASTOMA
     Route: 065
  5. CARBOPLATIN. [Suspect]
     Active Substance: CARBOPLATIN
     Indication: NEPHROBLASTOMA
     Route: 065
  6. UROMITEXAN [Suspect]
     Active Substance: MESNA
     Indication: NEPHROBLASTOMA
     Route: 065

REACTIONS (2)
  - Product use in unapproved indication [Unknown]
  - Nephropathy toxic [Unknown]
